FAERS Safety Report 4716870-3 (Version None)
Quarter: 2005Q3

REPORT INFORMATION
  Report Type: 
  Country: None (occurrence: None)
  Receive Date: 20050719
  Receipt Date: 20050708
  Transmission Date: 20060218
  Serious: Yes (Hospitalization, Other)
  Sender: FDA-Public Use
  Company Number: US-MERCK-0507USA01260

PATIENT
  Sex: Female

DRUGS (1)
  1. VIOXX [Suspect]
     Route: 048
     Dates: start: 20010501, end: 20050101

REACTIONS (5)
  - AORTIC OCCLUSION [None]
  - ARTERIOSPASM CORONARY [None]
  - CARDIAC DISORDER [None]
  - STENT OCCLUSION [None]
  - SYNCOPE [None]
